FAERS Safety Report 8299105-7 (Version None)
Quarter: 2012Q2

REPORT INFORMATION
  Report Type: 
  Country: None (occurrence: None)
  Receive Date: 20120419
  Receipt Date: 20120416
  Transmission Date: 20120825
  Serious: Yes (Other)
  Sender: FDA-Public Use
  Company Number: US-TEVA-333828USA

PATIENT
  Age: 66 Year
  Sex: Female

DRUGS (2)
  1. WARFARIN SODIUM [Suspect]
     Dosage: ADJUSTED TO MAINTAIN AN INR OF 2.0 TO 3.0
     Route: 065
  2. ACETAMINOPHEN [Interacting]
     Indication: BACK PAIN
     Dosage: UP TO 650MG FOUR TIMES DAILY
     Route: 065

REACTIONS (2)
  - DRUG INTERACTION [None]
  - INTERNATIONAL NORMALISED RATIO INCREASED [None]
